FAERS Safety Report 23158944 (Version 2)
Quarter: 2024Q2

REPORT INFORMATION
  Report Type: Spontaneous
  Country: AU (occurrence: None)
  Receive Date: 20231108
  Receipt Date: 20240517
  Transmission Date: 20240716
  Serious: Yes (Death)
  Sender: FDA-Public Use
  Company Number: 2023A252222

PATIENT
  Age: 75 Year
  Sex: Male
  Weight: 116 kg

DRUGS (41)
  1. ESOMEPRAZOLE [Suspect]
     Active Substance: ESOMEPRAZOLE
     Route: 048
     Dates: start: 20230806, end: 20230816
  2. METOPROLOL TARTRATE [Suspect]
     Active Substance: METOPROLOL TARTRATE
     Route: 048
     Dates: start: 20230813, end: 20230817
  3. ACTRAPID [Suspect]
     Active Substance: INSULIN HUMAN
     Dates: start: 20230806, end: 20230817
  4. CALCIUM CHLORIDE [Suspect]
     Active Substance: CALCIUM CHLORIDE
     Dates: start: 20230811, end: 20230811
  5. CALCIUM GLUCONATE MONOHYDRATE [Suspect]
     Active Substance: CALCIUM GLUCONATE MONOHYDRATE
     Dates: start: 20230811, end: 20230813
  6. DEXTROSE [Suspect]
     Active Substance: DEXTROSE\DEXTROSE MONOHYDRATE
     Dates: start: 20230816, end: 20230826
  7. MAGNESIUM SULFATE HEPTAHYDRATE [Suspect]
     Active Substance: MAGNESIUM SULFATE HEPTAHYDRATE
     Dates: start: 20230809, end: 20230809
  8. METARAMINOL BITARTRATE [Suspect]
     Active Substance: METARAMINOL BITARTRATE
     Dates: start: 20230806, end: 20230815
  9. MOVICOL [Suspect]
     Active Substance: POLYETHYLENE GLYCOL 3350\POTASSIUM CHLORIDE\SODIUM BICARBONATE\SODIUM CHLORIDE
     Dates: start: 20230808, end: 20230809
  10. POTASSIUM PHOSPHATE, MONOBASIC [Suspect]
     Active Substance: POTASSIUM PHOSPHATE, MONOBASIC
     Dates: start: 20230809, end: 20230809
  11. ALBUTEROL [Suspect]
     Active Substance: ALBUTEROL
     Dates: start: 20230812, end: 20230817
  12. PIPERACILLIN SODIUM\TAZOBACTAM SODIUM [Suspect]
     Active Substance: PIPERACILLIN SODIUM\TAZOBACTAM SODIUM
  13. THIAMINE HYDROCHLORIDE [Suspect]
     Active Substance: THIAMINE HYDROCHLORIDE
     Dates: start: 20230817, end: 20230817
  14. ACYCLOVIR [Suspect]
     Active Substance: ACYCLOVIR
     Dates: start: 20230816, end: 20230817
  15. AMIODARONE HYDROCHLORIDE [Suspect]
     Active Substance: AMIODARONE HYDROCHLORIDE
     Dates: start: 20230806, end: 20230817
  16. ATOVAQUONE [Suspect]
     Active Substance: ATOVAQUONE
     Dates: start: 20230807, end: 20230809
  17. AZITHROMYCIN [Suspect]
     Active Substance: AZITHROMYCIN
     Dates: start: 20230806, end: 20230810
  18. CEFTRIAXONE [Suspect]
     Active Substance: CEFTRIAXONE\CEFTRIAXONE SODIUM
     Dates: start: 20230806, end: 20230806
  19. DEXAMETHASONE [Suspect]
     Active Substance: DEXAMETHASONE
     Dates: start: 20230807, end: 20230816
  20. DIGOXIN [Suspect]
     Active Substance: DIGOXIN
     Dates: start: 20230812, end: 20230817
  21. ENOXAPARIN SODIUM [Suspect]
     Active Substance: ENOXAPARIN SODIUM
     Dates: start: 20230806, end: 20230817
  22. FENTANYL [Suspect]
     Active Substance: FENTANYL\FENTANYL CITRATE
     Dates: start: 20230806, end: 20230817
  23. FUROSEMIDE [Suspect]
     Active Substance: FUROSEMIDE
     Dates: start: 20230806, end: 20230809
  24. HYDROCORTISONE [Suspect]
     Active Substance: HYDROCORTISONE
     Dates: start: 20230806, end: 20230806
  25. IPRATROPIUM BROMIDE [Suspect]
     Active Substance: IPRATROPIUM BROMIDE\IPRATROPIUM BROMIDE ANHYDROUS
     Dates: start: 20230809, end: 20230809
  26. KETAMINE HYDROCHLORIDE [Suspect]
     Active Substance: KETAMINE HYDROCHLORIDE
     Dates: start: 20230806, end: 20230809
  27. METOCLOPRAMIDE [Suspect]
     Active Substance: METOCLOPRAMIDE
     Dates: start: 20230810, end: 20230813
  28. MIDAZOLAM [Suspect]
     Active Substance: MIDAZOLAM
     Dates: start: 20230806, end: 20230817
  29. MORPHINE [Suspect]
     Active Substance: MORPHINE
     Dates: start: 20230817, end: 20230817
  30. NITRIC OXIDE [Suspect]
     Active Substance: NITRIC OXIDE
     Dates: start: 20230806, end: 20230810
  31. NOREPINEPHRINE [Suspect]
     Active Substance: NOREPINEPHRINE\NOREPINEPHRINE BITARTRATE
     Dates: start: 20230807, end: 20230816
  32. ACETAMINOPHEN [Suspect]
     Active Substance: ACETAMINOPHEN
     Dates: start: 20230807, end: 20230817
  33. POTASSIUM CHLORIDE [Suspect]
     Active Substance: POTASSIUM CHLORIDE
     Dates: start: 20230807, end: 20230809
  34. PROPOFOL [Suspect]
     Active Substance: PROPOFOL
     Dates: start: 20230806, end: 20230815
  35. REMDESIVIR [Suspect]
     Active Substance: REMDESIVIR
     Dates: start: 20230807, end: 20230811
  36. ROCURONIUM BROMIDE [Suspect]
     Active Substance: ROCURONIUM BROMIDE
     Dates: start: 20230806, end: 20230809
  37. SENNOSIDES [Suspect]
     Active Substance: SENNOSIDES
     Dates: start: 20230808, end: 20230809
  38. SODIUM CHLORIDE [Suspect]
     Active Substance: SODIUM CHLORIDE
     Dates: start: 20230809, end: 20230815
  39. SULFAMETHOXAZOLE\TRIMETHOPRIM [Suspect]
     Active Substance: SULFAMETHOXAZOLE\TRIMETHOPRIM
     Dates: start: 20230807, end: 20230807
  40. VANCOMYCIN [Suspect]
     Active Substance: VANCOMYCIN
     Dates: start: 20230813, end: 20230813
  41. RITUXIMAB [Concomitant]
     Active Substance: RITUXIMAB

REACTIONS (2)
  - Respiratory failure [Fatal]
  - Condition aggravated [Fatal]

NARRATIVE: CASE EVENT DATE: 20230806
